FAERS Safety Report 7390235-0 (Version None)
Quarter: 2011Q2

REPORT INFORMATION
  Report Type: 
  Country: None (occurrence: None)
  Receive Date: 20110401
  Receipt Date: 20110329
  Transmission Date: 20111010
  Serious: Yes (Other)
  Sender: FDA-Public Use
  Company Number: US-PFIZER INC-2010094933

PATIENT
  Sex: Male
  Weight: 68 kg

DRUGS (10)
  1. LYRICA [Suspect]
     Indication: MUSCLE SPASMS
     Dosage: 50 MG, 3X/DAY
     Route: 048
     Dates: start: 20100726
  2. LYRICA [Suspect]
     Dosage: UNK
     Route: 048
  3. LYRICA [Suspect]
     Dosage: 50 MG, 3X/DAY
     Route: 048
     Dates: start: 20100727
  4. LYRICA [Suspect]
     Indication: NEUROPATHY PERIPHERAL
     Dosage: 150 MG, 1X/DAY
     Route: 048
     Dates: start: 20100701
  5. LITHIUM [Concomitant]
     Dosage: 450 IU, UNK
  6. DEXTROAMPHETAMINE [Concomitant]
     Indication: DEPRESSION
     Dosage: UNK
  7. TETRABENAZINE [Concomitant]
     Indication: MUSCLE SPASMS
     Dosage: UNK
  8. DEXTROSE [Concomitant]
     Dosage: UNK
  9. LEVOTHYROXINE [Concomitant]
     Indication: HYPERTHYROIDISM
     Dosage: 50 MG, UNK
  10. NORVASC [Concomitant]
     Indication: HYPERTENSION
     Dosage: 10 MG, UNK

REACTIONS (14)
  - CONVULSION [None]
  - AGITATION [None]
  - DYSKINESIA [None]
  - PAIN [None]
  - POOR QUALITY SLEEP [None]
  - MUSCLE SPASMS [None]
  - DRUG EFFECT DECREASED [None]
  - HYPERTHYROIDISM [None]
  - MOOD ALTERED [None]
  - LETHARGY [None]
  - DRUG INEFFECTIVE [None]
  - HYPERVIGILANCE [None]
  - DRUG ADMINISTRATION ERROR [None]
  - FLATULENCE [None]
